FAERS Safety Report 7728888-7 (Version None)
Quarter: 2011Q3

REPORT INFORMATION
  Report Type: 
  Country: None (occurrence: None)
  Receive Date: 20110906
  Receipt Date: 20110826
  Transmission Date: 20111222
  Serious: Yes (Hospitalization, Other)
  Sender: FDA-Public Use
  Company Number: PHHY2011DE76641

PATIENT
  Age: 28 Year
  Sex: Male

DRUGS (2)
  1. ASS+C HEXAL BRAUSETABLETTEN [Suspect]
     Indication: HEADACHE
     Dosage: 1 DF, UNK
  2. RAW CARROTS [Interacting]
     Route: 048

REACTIONS (5)
  - DRUG INTERACTION [None]
  - RESPIRATORY DISTRESS [None]
  - FLUSHING [None]
  - HYPERSENSITIVITY [None]
  - DIZZINESS [None]
